FAERS Safety Report 19154660 (Version 1)
Quarter: 2021Q2

REPORT INFORMATION
  Report Type: Spontaneous
  Country: JP (occurrence: JP)
  Receive Date: 20210419
  Receipt Date: 20210419
  Transmission Date: 20210717
  Serious: Yes (Other)
  Sender: FDA-Public Use
  Company Number: JP-JNJFOC-20210427707

PATIENT
  Age: 6 Decade
  Sex: Male

DRUGS (11)
  1. CLOZAPINE. [Suspect]
     Active Substance: CLOZAPINE
     Route: 048
  2. CLOZAPINE. [Suspect]
     Active Substance: CLOZAPINE
     Route: 048
  3. TOPINA [Suspect]
     Active Substance: TOPIRAMATE
     Indication: HALLUCINATION, AUDITORY
  4. CLOZAPINE. [Suspect]
     Active Substance: CLOZAPINE
     Route: 048
  5. CLOZAPINE. [Suspect]
     Active Substance: CLOZAPINE
     Route: 048
  6. TOPINA [Suspect]
     Active Substance: TOPIRAMATE
     Indication: SEIZURE PROPHYLAXIS
     Route: 048
  7. CLOZAPINE. [Suspect]
     Active Substance: CLOZAPINE
     Indication: SCHIZOPHRENIA
     Route: 048
  8. ADENINE [Concomitant]
     Active Substance: ADENINE
  9. CLOZAPINE. [Suspect]
     Active Substance: CLOZAPINE
     Route: 048
  10. CLOZAPINE. [Suspect]
     Active Substance: CLOZAPINE
     Route: 048
  11. CLOZAPINE. [Suspect]
     Active Substance: CLOZAPINE
     Route: 048

REACTIONS (2)
  - White blood cell count decreased [Unknown]
  - Neutropenia [Recovered/Resolved]
